FAERS Safety Report 26114260 (Version 2)
Quarter: 2025Q4

REPORT INFORMATION
  Report Type: Spontaneous
  Country: TH (occurrence: TH)
  Receive Date: 20251202
  Receipt Date: 20251223
  Transmission Date: 20260117
  Serious: Yes (Death, Hospitalization, Other)
  Sender: MERCK SHARP & DOHME LLC
  Company Number: TH-009507513-2320365

PATIENT
  Age: 63 Year
  Sex: Male

DRUGS (1)
  1. KEYTRUDA [Suspect]
     Active Substance: PEMBROLIZUMAB
     Indication: PD-L1 positive cancer
     Dosage: 200 MG, IV, Q 3 WEEKS
     Route: 042
     Dates: start: 20250707, end: 20250707

REACTIONS (5)
  - Malignant neoplasm progression [Fatal]
  - Pulmonary oedema [Unknown]
  - Pyrexia [Unknown]
  - Pneumonitis [Recovered/Resolved]
  - Pneumonitis [Unknown]

NARRATIVE: CASE EVENT DATE: 20250101
